FAERS Safety Report 6767286-X (Version None)
Quarter: 2010Q2

REPORT INFORMATION
  Report Type: 
  Country: None (occurrence: None)
  Receive Date: 20100614
  Receipt Date: 20100603
  Transmission Date: 20101027
  Serious: Yes (Hospitalization)
  Sender: FDA-Public Use
  Company Number: US-JNJFOC-20100601662

PATIENT
  Sex: Female
  Weight: 93.44 kg

DRUGS (5)
  1. REMICADE [Suspect]
     Indication: RHEUMATOID ARTHRITIS
     Route: 042
  2. REMICADE [Suspect]
     Route: 042
  3. CLARITIN [Concomitant]
     Indication: PREMEDICATION
  4. TYLENOL [Concomitant]
     Indication: PREMEDICATION
  5. ZANAFLEX [Concomitant]
     Route: 048

REACTIONS (4)
  - BACK PAIN [None]
  - INFUSION RELATED REACTION [None]
  - PARAESTHESIA [None]
  - TREMOR [None]
